FAERS Safety Report 26151248 (Version 1)
Quarter: 2025Q4

REPORT INFORMATION
  Report Type: Spontaneous
  Country: US (occurrence: None)
  Receive Date: 20251211
  Receipt Date: 20251211
  Transmission Date: 20260117
  Serious: No
  Sender: FDA-CTU
  Company Number: None

PATIENT
  Age: 60 Year
  Sex: Female
  Weight: 140.4 kg

DRUGS (16)
  1. MOUNJARO [Suspect]
     Active Substance: TIRZEPATIDE
     Indication: Type 2 diabetes mellitus
     Dosage: 1 INJECTION WEEKLY SUBCUTANEOUS
     Route: 058
     Dates: start: 20251206, end: 20251207
  2. desloratadine tab 5mg [Concomitant]
  3. Methylprednisolone tab 4mg [Concomitant]
  4. pentoxifylline er tab 400mg [Concomitant]
  5. Tamotidine tab 40 mg [Concomitant]
  6. Dextroamphetamine cap 5 mg [Concomitant]
  7. Humalog kwik [Concomitant]
  8. Fluticasone/salmet dis 500-50 [Concomitant]
  9. Bupropion sr tab 100mg [Concomitant]
  10. ALBUTEROL SULFATE [Concomitant]
     Active Substance: ALBUTEROL SULFATE
  11. general women^s multi vitamin [Concomitant]
  12. IBUPROFEN [Concomitant]
     Active Substance: IBUPROFEN
  13. ASPIRIN [Concomitant]
     Active Substance: ASPIRIN
  14. TYLENOL [Concomitant]
     Active Substance: ACETAMINOPHEN
  15. LIDOCAINE [Concomitant]
     Active Substance: LIDOCAINE
  16. BENADRYL [Concomitant]
     Active Substance: DIPHENHYDRAMINE HYDROCHLORIDE

REACTIONS (11)
  - Pain [None]
  - Immobile [None]
  - Bedridden [None]
  - Depersonalisation/derealisation disorder [None]
  - Derealisation [None]
  - Hypoaesthesia [None]
  - Paraesthesia [None]
  - Vestibular disorder [None]
  - Hypervigilance [None]
  - Sleep disorder [None]
  - Dyskinesia [None]

NARRATIVE: CASE EVENT DATE: 20251206
